FAERS Safety Report 4360909-4 (Version None)
Quarter: 2004Q2

REPORT INFORMATION
  Report Type: 
  Country: None (occurrence: None)
  Receive Date: 20040517
  Receipt Date: 20040510
  Transmission Date: 20050107
  Serious: Yes (Other)
  Sender: FDA-Public Use
  Company Number: TAP2004Q00566

PATIENT
  Sex: Male

DRUGS (1)
  1. PREVACID [Suspect]
     Indication: GASTROOESOPHAGEAL REFLUX DISEASE
     Dosage: 30 MG (30 MG, 1 IN 1 D); PER ORAL
     Route: 048
     Dates: start: 20010101, end: 20020101

REACTIONS (3)
  - CONDITION AGGRAVATED [None]
  - RETINAL DYSTROPHY [None]
  - VISUAL FIELD DEFECT [None]
